FAERS Safety Report 15548796 (Version 3)
Quarter: 2019Q4

REPORT INFORMATION
  Report Type: Spontaneous
  Country: CA (occurrence: CA)
  Receive Date: 20181025
  Receipt Date: 20191007
  Transmission Date: 20200122
  Serious: Yes (Death)
  Sender: FDA-Public Use
  Company Number: CA-TEVA-2018-CA-965322

PATIENT
  Age: 28 Year
  Sex: Female

DRUGS (4)
  1. ACETAMINOPHEN. [Suspect]
     Active Substance: ACETAMINOPHEN
     Indication: SUICIDE ATTEMPT
     Route: 065
  2. HEXETIDINE [Suspect]
     Active Substance: HEXETIDINE
     Indication: SUICIDE ATTEMPT
     Route: 065
  3. BUPROPION. [Suspect]
     Active Substance: BUPROPION
     Indication: SUICIDE ATTEMPT
     Route: 048
  4. CLINDA-T [Suspect]
     Active Substance: CLINDAMYCIN PHOSPHATE
     Indication: SUICIDE ATTEMPT
     Route: 065

REACTIONS (4)
  - Overdose [Fatal]
  - Completed suicide [Fatal]
  - Toxicity to various agents [Fatal]
  - Bezoar [Fatal]
